FAERS Safety Report 6142359-3 (Version None)
Quarter: 2009Q2

REPORT INFORMATION
  Report Type: 
  Country: None (occurrence: None)
  Receive Date: 20090403
  Receipt Date: 20090324
  Transmission Date: 20091009
  Serious: Yes (Other)
  Sender: FDA-Public Use
  Company Number: CY-PFIZER INC-2009189334

PATIENT

DRUGS (3)
  1. ZITHROMAX [Suspect]
     Indication: LEGIONELLA INFECTION
     Route: 042
  2. ZITHROMAX [Suspect]
     Dosage: FREQUENCY: 3/WEEK
     Route: 048
     Dates: start: 20090101
  3. QUINOLINES [Concomitant]

REACTIONS (2)
  - HEPATIC ENZYME INCREASED [None]
  - OFF LABEL USE [None]
